FAERS Safety Report 9013419 (Version 1)
Quarter: 2013Q1

REPORT INFORMATION
  Report Type: Spontaneous
  Country: CA (occurrence: CA)
  Receive Date: 20130114
  Receipt Date: 20130114
  Transmission Date: 20140127
  Serious: Yes (Death, Hospitalization, Other)
  Sender: FDA-Public Use
  Company Number: CA-NOVOPROD-368211

PATIENT
  Age: 64 Year
  Sex: Male

DRUGS (7)
  1. NOVORAPID [Suspect]
     Indication: PRODUCT USED FOR UNKNOWN INDICATION
     Dosage: 36 IU, QD
     Route: 065
  2. NOVOLIN [Suspect]
     Dosage: 30 IU, QD
     Route: 065
  3. ASPIRIN [Concomitant]
  4. LASIX                              /00032601/ [Suspect]
     Dosage: UNK
  5. METFORMIN [Suspect]
     Dosage: 2500 MG, UNK
  6. METOLAZONE [Suspect]
     Dosage: UNK
  7. TYLENOL /00020001/ [Concomitant]

REACTIONS (6)
  - Cardiac failure congestive [Fatal]
  - Cardiogenic shock [Fatal]
  - Condition aggravated [Fatal]
  - Hepatic function abnormal [Fatal]
  - Pneumonia [Fatal]
  - Renal failure acute [Fatal]
